FAERS Safety Report 6723271-5 (Version None)
Quarter: 2010Q2

REPORT INFORMATION
  Report Type: 
  Country: None (occurrence: None)
  Receive Date: 20100511
  Receipt Date: 20100215
  Transmission Date: 20101027
  Serious: Yes (Other)
  Sender: FDA-Public Use
  Company Number: NO-SOLVAY-00310002259

PATIENT
  Age: 68 Year
  Sex: Female

DRUGS (1)
  1. FEVARIN (FLUVOXAMINE MALEATE) [Suspect]
     Indication: DRUG USE FOR UNKNOWN INDICATION

REACTIONS (4)
  - ANXIETY [None]
  - CIRCADIAN RHYTHM SLEEP DISORDER [None]
  - DELUSION [None]
  - RESTLESSNESS [None]
